FAERS Safety Report 6198151-7 (Version None)
Quarter: 2009Q2

REPORT INFORMATION
  Report Type: 
  Country: None (occurrence: None)
  Receive Date: 20090519
  Receipt Date: 20090514
  Transmission Date: 20091009
  Serious: Yes (Death)
  Sender: FDA-Public Use
  Company Number: 2009US001264

PATIENT
  Age: 32 Year
  Sex: Male

DRUGS (1)
  1. AMBISOME [Suspect]
     Indication: CRYPTOCOCCOSIS
     Dosage: 250 MG, IV NOS
     Route: 042
     Dates: start: 20090411, end: 20090412

REACTIONS (2)
  - HIV INFECTION [None]
  - MENINGITIS CRYPTOCOCCAL [None]
